FAERS Safety Report 11980201 (Version 3)
Quarter: 2016Q2

REPORT INFORMATION
  Report Type: Report from Study
  Country: US (occurrence: US)
  Receive Date: 20160129
  Receipt Date: 20160606
  Transmission Date: 20160815
  Serious: Yes (Death, Hospitalization)
  Sender: FDA-Public Use
  Company Number: PHEH2016US002277

PATIENT
  Sex: Female
  Weight: 121 kg

DRUGS (1)
  1. ZYKADIA [Suspect]
     Active Substance: CERITINIB
     Indication: MESOTHELIOMA
     Dosage: UNK
     Route: 048
     Dates: start: 20141217

REACTIONS (9)
  - Malignant neoplasm progression [Fatal]
  - Pain [Unknown]
  - Dyspnoea [Unknown]
  - Asthenia [Unknown]
  - Platelet count decreased [Unknown]
  - Haemoglobin decreased [Unknown]
  - Infection [Recovered/Resolved]
  - Body temperature decreased [Recovered/Resolved]
  - Mesothelioma [Fatal]
